FAERS Safety Report 8769738 (Version 1)
Quarter: 2012Q4

REPORT INFORMATION
  Report Type: 
  Country: JP (occurrence: JP)
  Receive Date: 20120905
  Receipt Date: 20120905
  Transmission Date: 20130627
  Serious: Yes (Life-Threatening, Other)
  Sender: FDA-Public Use
  Company Number: JP-009507513-2011SP018210

PATIENT

DRUGS (13)
  1. BRIDION [Suspect]
     Indication: NEUROMUSCULAR BLOCKADE REVERSAL
     Dosage: 100 mg, ONCE
     Route: 042
     Dates: start: 20110414, end: 20110414
  2. ESLAX [Concomitant]
     Indication: NEUROMUSCULAR BLOCKING THERAPY
     Dosage: 40 mg, ONCE
     Route: 042
     Dates: start: 20110414, end: 20110414
  3. EPHEDRINE [Concomitant]
     Dosage: 12 mg, divided dose frequency unknown
     Route: 042
     Dates: start: 20110414, end: 20110414
  4. NEOSYNESIN [Concomitant]
     Dosage: 1 mg, unk
     Route: 042
     Dates: start: 20110414, end: 20110414
  5. THYRADIN-S [Concomitant]
     Indication: BASEDOW^S DISEASE
     Dosage: daily dose unknown
     Route: 048
  6. MERCAZOLE [Concomitant]
     Indication: BASEDOW^S DISEASE
  7. CRIXOFOL [Concomitant]
     Indication: ANAESTHESIA PROCEDURE
     Dosage: 2.5-3.0 MCG/ML
     Route: 042
     Dates: start: 20110414, end: 20110414
  8. REMIFENTANIL HYDROCHLORIDE [Concomitant]
     Indication: ANAESTHESIA PROCEDURE
     Dosage: 0.2-0.4 MG KG MIN
     Route: 042
     Dates: start: 20110414, end: 20110414
  9. ATROPINE [Concomitant]
     Dates: start: 20110414, end: 20110414
  10. FLURBIPROFEN AXETIL [Concomitant]
     Route: 042
     Dates: start: 20110414, end: 20110414
  11. FENTANYL [Concomitant]
     Route: 042
     Dates: start: 20110414, end: 20110414
  12. MEPIVACAINE HYDROCHLORIDE [Concomitant]
     Dates: start: 20110414, end: 20110414
  13. ROPIVACAINE HYDROCHLORIDE [Concomitant]
     Dates: start: 20110414, end: 20110414

REACTIONS (8)
  - Anaphylactic shock [Recovered/Resolved]
  - Blood pressure decreased [Recovered/Resolved]
  - Erythema [Recovered/Resolved]
  - Airway peak pressure increased [Recovered/Resolved]
  - Wheezing [Recovered/Resolved]
  - Oedema [Recovered/Resolved]
  - Oxygen saturation decreased [Recovered/Resolved]
  - Tachycardia [Recovered/Resolved]
